FAERS Safety Report 7256645-7 (Version None)
Quarter: 2011Q1

REPORT INFORMATION
  Report Type: 
  Country: None (occurrence: None)
  Receive Date: 20110129
  Receipt Date: 20100805
  Transmission Date: 20110831
  Serious: No
  Sender: FDA-Public Use
  Company Number: US-ABBOTT-10P-163-0662919-00

PATIENT
  Sex: Female
  Weight: 76.272 kg

DRUGS (3)
  1. PREVACID [Concomitant]
     Indication: GASTROOESOPHAGEAL REFLUX DISEASE
  2. VERAPAMIL [Concomitant]
     Indication: HYPERTENSION
  3. HUMIRA [Suspect]
     Indication: PSORIATIC ARTHROPATHY
     Dates: start: 20100616, end: 20100616

REACTIONS (9)
  - HEADACHE [None]
  - PRURITUS [None]
  - ABDOMINAL PAIN UPPER [None]
  - DEMENTIA [None]
  - GASTROINTESTINAL PAIN [None]
  - INJECTION SITE ERYTHEMA [None]
  - PRURITUS GENITAL [None]
  - RASH GENERALISED [None]
  - MICTURITION DISORDER [None]
